FAERS Safety Report 10564312 (Version 3)
Quarter: 2015Q1

REPORT INFORMATION
  Report Type: Report from Study
  Country: CA (occurrence: CA)
  Receive Date: 20141104
  Receipt Date: 20150123
  Transmission Date: 20150720
  Serious: Yes (Hospitalization, Other)
  Sender: FDA-Public Use
  Company Number: CA-ABBVIE-14K-028-1294914-00

PATIENT
  Age: 22 Year
  Sex: Female
  Weight: 66 kg

DRUGS (2)
  1. PREDNISONE. [Concomitant]
     Active Substance: PREDNISONE
     Indication: PRODUCT USED FOR UNKNOWN INDICATION
     Dosage: 40 MILLIGRAMS WITH TAPER
     Dates: start: 201306, end: 201309
  2. HUMIRA [Suspect]
     Active Substance: ADALIMUMAB
     Indication: CROHN^S DISEASE
     Route: 058
     Dates: start: 20100416, end: 20131001

REACTIONS (5)
  - Crohn^s disease [Unknown]
  - Small intestinal perforation [Unknown]
  - Abdominal abscess [Recovered/Resolved]
  - Skin infection [Unknown]
  - Ascites [Unknown]

NARRATIVE: CASE EVENT DATE: 2013
